FAERS Safety Report 9115259 (Version 1)
Quarter: 2013Q1

REPORT INFORMATION
  Report Type: Spontaneous
  Country: US (occurrence: US)
  Receive Date: 20130225
  Receipt Date: 20130225
  Transmission Date: 20140127
  Serious: Yes (Death, Hospitalization, Other)
  Sender: FDA-Public Use
  Company Number: US-ASTELLAS-2013US002042

PATIENT
  Sex: Female

DRUGS (5)
  1. TARCEVA [Suspect]
     Indication: HEPATIC CANCER
     Dosage: UNK
     Route: 065
     Dates: start: 20100322
  2. AVASTIN                            /01555201/ [Suspect]
     Indication: HEPATIC CANCER
     Dosage: UNK
     Route: 065
     Dates: start: 20100322
  3. METFORMIN                          /00082702/ [Concomitant]
     Indication: PRODUCT USED FOR UNKNOWN INDICATION
     Dosage: 500 MG, BID
     Route: 048
  4. OMEPRAZOLE [Concomitant]
     Indication: PRODUCT USED FOR UNKNOWN INDICATION
     Dosage: 40 MG, BID
     Route: 048
  5. PRAVASTATIN [Concomitant]
     Indication: PRODUCT USED FOR UNKNOWN INDICATION
     Dosage: 80 MG, UNKNOWN/D
     Route: 065

REACTIONS (14)
  - Off label use [Unknown]
  - Hyponatraemia [Unknown]
  - Hypoxia [Unknown]
  - Hepatic cirrhosis [Unknown]
  - Nerve compression [Unknown]
  - Spinal column stenosis [Unknown]
  - Hypotension [Unknown]
  - Renal failure acute [Unknown]
  - Malignant neoplasm progression [Unknown]
  - Pneumonia [Unknown]
  - Asthenia [Unknown]
  - Decreased appetite [Unknown]
  - Nausea [Unknown]
  - Malignant neoplasm progression [Fatal]
